FAERS Safety Report 5211232-7 (Version None)
Quarter: 2006Q4

REPORT INFORMATION
  Report Type: 
  Country: None (occurrence: None)
  Receive Date: 20061114
  Receipt Date: 20060825
  Transmission Date: 20070319
  Serious: No
  Sender: FDA-Public Use
  Company Number: S06-USA-03470-01

PATIENT
  Age: 82 Year
  Sex: Female

DRUGS (8)
  1. NAMENDA [Suspect]
     Indication: DEMENTIA ALZHEIMER'S TYPE
     Dosage: 10 MG, BID; PO
     Route: 048
     Dates: start: 20040101, end: 20060808
  2. ACTONEL [Concomitant]
  3. LISINOPRIL [Concomitant]
  4. INDERAL LA [Concomitant]
  5. FUROSEMIDE [Concomitant]
  6. SEROQUEL [Concomitant]
  7. LORAZEPAM [Concomitant]
  8. VITAMIN B-12 [Concomitant]

REACTIONS (1)
  - BLOOD CREATININE INCREASED [None]
